FAERS Safety Report 21085184 (Version 1)
Quarter: 2022Q3

REPORT INFORMATION
  Report Type: Other
  Country: AR (occurrence: AR)
  Receive Date: 20220714
  Receipt Date: 20220714
  Transmission Date: 20221027
  Serious: No
  Sender: FDA-Public Use
  Company Number: AR-Blueprint Medicines Corporation-LT-AR-2022-002167

PATIENT

DRUGS (1)
  1. AYVAKIT [Suspect]
     Active Substance: AVAPRITINIB
     Indication: Malignant neoplasm of unknown primary site
     Route: 048

REACTIONS (2)
  - Disease progression [Unknown]
  - Off label use [Unknown]
